FAERS Safety Report 15596607 (Version 1)
Quarter: 2018Q4

REPORT INFORMATION
  Report Type: Report from Study
  Country: PK (occurrence: PK)
  Receive Date: 20181108
  Receipt Date: 20181108
  Transmission Date: 20190205
  Serious: Yes (Other)
  Sender: FDA-Public Use
  Company Number: PK-ROCHE-2211076

PATIENT
  Age: 43 Year
  Sex: Female

DRUGS (1)
  1. RISTOVA [Suspect]
     Active Substance: RITUXIMAB
     Indication: DIFFUSE LARGE B-CELL LYMPHOMA
     Route: 042
     Dates: start: 20171226

REACTIONS (1)
  - Weight increased [Unknown]
